FAERS Safety Report 10151452 (Version 1)
Quarter: 2014Q2

REPORT INFORMATION
  Report Type: Report from Study
  Country: US (occurrence: US)
  Receive Date: 20140504
  Receipt Date: 20140504
  Transmission Date: 20141212
  Serious: Yes (Hospitalization, Other)
  Sender: FDA-Public Use
  Company Number: US-BRISTOL-MYERS SQUIBB COMPANY-20669099

PATIENT
  Age: 78 Year
  Sex: Male
  Weight: 71.2 kg

DRUGS (8)
  1. ERBITUX SOLN FOR INF [Suspect]
     Dosage: SECOND INFUSION ON 29-APR-2014.
     Dates: start: 20140409
  2. LANTUS [Concomitant]
     Dosage: 1 DF= 10 UNITS.2 UNITS UP OR DOWN AS NEEDED
  3. GABAPENTIN [Concomitant]
     Dosage: IN MORNING.600 IN LUNCH AND AT NIGHT.
  4. PROTONIX [Concomitant]
     Dosage: WITH MEALS.
  5. CREON [Concomitant]
     Dosage: WITH MEALS
  6. METOPROLOL [Concomitant]
     Dosage: AT MORNING AND AT NIGHT
  7. MULTIVITAMIN [Concomitant]
  8. COMPAZINE [Concomitant]
     Indication: NAUSEA
     Dosage: AS NEEDED.

REACTIONS (5)
  - Melaena [Unknown]
  - Pneumonia [Unknown]
  - Rash [Unknown]
  - Urinary tract infection [Unknown]
  - Haematemesis [Unknown]
